FAERS Safety Report 9818520 (Version 1)
Quarter: 2014Q1

REPORT INFORMATION
  Report Type: Spontaneous
  Country: DE (occurrence: DE)
  Receive Date: 20140115
  Receipt Date: 20140115
  Transmission Date: 20141002
  Serious: Yes (Life-Threatening, Hospitalization)
  Sender: FDA-Public Use
  Company Number: DE-GE HEALTHCARE MEDICAL DIAGNOSTICS-VISP-PR-1401S-0007

PATIENT
  Age: 55 Year
  Sex: Male
  Weight: 74 kg

DRUGS (2)
  1. VISIPAQUE [Suspect]
     Indication: METASTASIS
     Route: 042
     Dates: start: 20140109, end: 20140109
  2. VISIPAQUE [Suspect]
     Indication: DIAGNOSTIC PROCEDURE

REACTIONS (6)
  - Swelling face [Unknown]
  - Swelling [Unknown]
  - Loss of consciousness [Unknown]
  - Dyspnoea [Unknown]
  - Convulsion [Unknown]
  - Blood pressure decreased [Unknown]
